FAERS Safety Report 10867069 (Version 1)
Quarter: 2015Q1

REPORT INFORMATION
  Report Type: Spontaneous
  Country: DE (occurrence: DE)
  Receive Date: 20150225
  Receipt Date: 20150225
  Transmission Date: 20150721
  Serious: Yes (Other)
  Sender: FDA-Public Use
  Company Number: DE-JNJFOC-20150208503

PATIENT
  Sex: Female

DRUGS (2)
  1. CARBOPLATIN. [Suspect]
     Active Substance: CARBOPLATIN
     Indication: OVARIAN CANCER RECURRENT
     Dosage: AREA UNDER CURVE 5
     Route: 065
  2. DOXORUBICIN [Suspect]
     Active Substance: DOXORUBICIN
     Indication: OVARIAN CANCER RECURRENT
     Route: 042

REACTIONS (22)
  - Nausea [Unknown]
  - Constipation [Unknown]
  - Diarrhoea [Unknown]
  - Mucosal inflammation [Unknown]
  - Ovarian cancer recurrent [Unknown]
  - Palmar-plantar erythrodysaesthesia syndrome [Unknown]
  - Vomiting [Unknown]
  - Fatigue [Unknown]
  - Peripheral sensory neuropathy [Unknown]
  - Alopecia [Unknown]
  - Febrile neutropenia [Unknown]
  - Infection [Unknown]
  - Pain [Unknown]
  - Blood creatinine [Unknown]
  - Anaemia [Unknown]
  - Leukopenia [Unknown]
  - Myalgia [Unknown]
  - Hypersensitivity [Unknown]
  - Arthralgia [Unknown]
  - Thrombocytopenia [Unknown]
  - Peripheral motor neuropathy [Unknown]
  - Neutropenia [Unknown]
